FAERS Safety Report 25556596 (Version 2)
Quarter: 2025Q3

REPORT INFORMATION
  Report Type: Spontaneous
  Country: US (occurrence: US)
  Receive Date: 20250715
  Receipt Date: 20250721
  Transmission Date: 20251020
  Serious: Yes (Life-Threatening, Hospitalization, Other)
  Sender: PFIZER
  Company Number: US-PFIZER INC-PV202500082836

PATIENT
  Age: 30 Year
  Sex: Male

DRUGS (2)
  1. GEMCITABINE HYDROCHLORIDE [Suspect]
     Active Substance: GEMCITABINE HYDROCHLORIDE
     Indication: Testicular cancer metastatic
  2. OXALIPLATIN [Concomitant]
     Active Substance: OXALIPLATIN
     Indication: Testicular germ cell tumour

REACTIONS (2)
  - Pneumonitis [Not Recovered/Not Resolved]
  - Off label use [Unknown]
